FAERS Safety Report 5499409-7 (Version None)
Quarter: 2007Q4

REPORT INFORMATION
  Report Type: 
  Country: None (occurrence: None)
  Receive Date: 20071026
  Receipt Date: 20071018
  Transmission Date: 20080405
  Serious: Yes (Hospitalization)
  Sender: FDA-Public Use
  Company Number: B0492021A

PATIENT
  Age: 38 Year
  Sex: Male

DRUGS (15)
  1. ZELITREX [Suspect]
     Indication: DRUG USE FOR UNKNOWN INDICATION
     Route: 048
     Dates: start: 20070719, end: 20070730
  2. TRIFLUCAN [Suspect]
     Indication: DRUG USE FOR UNKNOWN INDICATION
     Route: 048
     Dates: start: 20070716, end: 20070725
  3. TAXOTERE [Suspect]
     Indication: DRUG USE FOR UNKNOWN INDICATION
     Route: 042
     Dates: start: 20070709, end: 20070709
  4. KALETRA [Concomitant]
     Dates: start: 20070705
  5. TRUVADA [Concomitant]
     Dates: start: 20070705
  6. BACTRIM [Concomitant]
     Dates: start: 20070705
  7. LEXOMIL [Concomitant]
     Dates: start: 20070705
  8. ZOLPIDEM TARTRATE [Concomitant]
     Dates: start: 20070705
  9. TRAMADOL HCL [Concomitant]
     Dates: start: 20070705
  10. ONDANSETRON [Concomitant]
     Dates: start: 20070709
  11. MEDROL [Concomitant]
     Dates: start: 20070709
  12. PRIMPERAN [Concomitant]
     Dates: start: 20070709
  13. ACUPAN [Concomitant]
     Dates: start: 20070709
  14. TAZOCILLINE [Concomitant]
     Dates: start: 20070715, end: 20070717
  15. GENTAMICIN [Concomitant]
     Dates: start: 20070715, end: 20070717

REACTIONS (6)
  - ALANINE AMINOTRANSFERASE INCREASED [None]
  - ASPARTATE AMINOTRANSFERASE INCREASED [None]
  - BLOOD ALKALINE PHOSPHATASE INCREASED [None]
  - BLOOD BILIRUBIN INCREASED [None]
  - GAMMA-GLUTAMYLTRANSFERASE INCREASED [None]
  - HEPATIC FUNCTION ABNORMAL [None]
